FAERS Safety Report 15703141 (Version 1)
Quarter: 2018Q4

REPORT INFORMATION
  Report Type: Report from Study
  Country: US (occurrence: US)
  Receive Date: 20181210
  Receipt Date: 20181210
  Transmission Date: 20190205
  Serious: Yes (Other)
  Sender: FDA-Public Use
  Company Number: US-ROCHE-1440034

PATIENT

DRUGS (7)
  1. GEMCITABINE [Suspect]
     Active Substance: GEMCITABINE\GEMCITABINE HYDROCHLORIDE
     Indication: NEOPLASM MALIGNANT
     Route: 042
  2. DOVITINIB [Suspect]
     Active Substance: DOVITINIB LACTATE
     Route: 048
  3. DOVITINIB [Suspect]
     Active Substance: DOVITINIB LACTATE
     Indication: NEOPLASM MALIGNANT
     Route: 048
  4. CAPECITABINE. [Suspect]
     Active Substance: CAPECITABINE
     Indication: PANCREATIC CARCINOMA
     Route: 048
  5. DOVITINIB [Suspect]
     Active Substance: DOVITINIB LACTATE
     Indication: METASTATIC NEOPLASM
     Route: 048
  6. GEMCITABINE [Suspect]
     Active Substance: GEMCITABINE\GEMCITABINE HYDROCHLORIDE
     Indication: METASTATIC NEOPLASM
  7. CAPECITABINE. [Suspect]
     Active Substance: CAPECITABINE
     Indication: BILIARY CANCER METASTATIC

REACTIONS (24)
  - Enterocolitis [Unknown]
  - Anaemia [Unknown]
  - Nausea [Unknown]
  - Blood alkaline phosphatase increased [Unknown]
  - Embolism [Unknown]
  - Dehydration [Unknown]
  - Alanine aminotransferase increased [Unknown]
  - Gastrointestinal haemorrhage [Unknown]
  - Rash [Unknown]
  - Lipase increased [Unknown]
  - Febrile neutropenia [Unknown]
  - Palmar-plantar erythrodysaesthesia syndrome [Unknown]
  - Neutropenia [Unknown]
  - Aspartate aminotransferase increased [Unknown]
  - Diarrhoea [Unknown]
  - Gamma-glutamyltransferase increased [Unknown]
  - Acute coronary syndrome [Unknown]
  - Vomiting [Unknown]
  - Blood bilirubin increased [Unknown]
  - Deep vein thrombosis [Unknown]
  - Thrombocytopenia [Unknown]
  - Pyrexia [Unknown]
  - Hypertension [Unknown]
  - Amylase increased [Unknown]
